FAERS Safety Report 23573720 (Version 1)
Quarter: 2024Q1

REPORT INFORMATION
  Report Type: Spontaneous
  Country: FR (occurrence: FR)
  Receive Date: 20240228
  Receipt Date: 20240228
  Transmission Date: 20240410
  Serious: Yes (Death, Life-Threatening, Hospitalization, Other)
  Sender: FDA-Public Use
  Company Number: FR-ROCHE-2953462

PATIENT
  Age: 17 Year
  Sex: Female

DRUGS (10)
  1. AMPHOTERICIN B [Suspect]
     Active Substance: AMPHOTERICIN B
     Indication: Aspergillus infection
     Dosage: UNK UNK, UNKNOWN
     Route: 042
  2. CYCLOPHOSPHAMIDE [Suspect]
     Active Substance: CYCLOPHOSPHAMIDE
     Indication: Neutropenia
     Dosage: UNK UNK, UNKNOWN
     Route: 065
  3. CYCLOPHOSPHAMIDE [Suspect]
     Active Substance: CYCLOPHOSPHAMIDE
     Indication: Immunosuppressant drug therapy
  4. RITUXIMAB [Suspect]
     Active Substance: RITUXIMAB
     Indication: Neutropenia
     Dosage: UNK UNK, UNKNOWN
     Route: 042
  5. RITUXIMAB [Suspect]
     Active Substance: RITUXIMAB
     Indication: Immunosuppressant drug therapy
  6. VORICONAZOLE [Suspect]
     Active Substance: VORICONAZOLE
     Indication: Neutropenia
     Dosage: UNK
     Route: 065
  7. CYCLOPHOSPHAMIDE [Concomitant]
     Active Substance: CYCLOPHOSPHAMIDE
     Indication: Autoimmune neutropenia
     Dosage: UNK
     Route: 065
  8. CYCLOPHOSPHAMIDE [Concomitant]
     Active Substance: CYCLOPHOSPHAMIDE
     Indication: Immunosuppressant drug therapy
  9. RITUXIMAB [Concomitant]
     Active Substance: RITUXIMAB
     Indication: Autoimmune neutropenia
     Dosage: UNK
     Route: 065
  10. RITUXIMAB [Concomitant]
     Active Substance: RITUXIMAB
     Indication: Immunosuppressant drug therapy

REACTIONS (8)
  - Drug ineffective [Fatal]
  - Fungal endocarditis [Unknown]
  - Brain abscess [Unknown]
  - Septic embolus [Unknown]
  - Aspergillus infection [Unknown]
  - Chronic sinusitis [Unknown]
  - Brain compression [Unknown]
  - Product use in unapproved indication [Unknown]
